FAERS Safety Report 20201917 (Version 3)
Quarter: 2025Q1

REPORT INFORMATION
  Report Type: Report from Study
  Country: DE (occurrence: DE)
  Receive Date: 20211217
  Receipt Date: 20250217
  Transmission Date: 20250409
  Serious: No
  Sender: ROCHE
  Company Number: DE-ROCHE-2979951

PATIENT
  Age: 27 Year
  Sex: Female

DRUGS (6)
  1. OCREVUS [Suspect]
     Active Substance: OCRELIZUMAB
     Indication: Relapsing-remitting multiple sclerosis
     Route: 040
  2. OCREVUS [Suspect]
     Active Substance: OCRELIZUMAB
     Route: 040
  3. OCREVUS [Suspect]
     Active Substance: OCRELIZUMAB
     Route: 040
  4. OCREVUS [Suspect]
     Active Substance: OCRELIZUMAB
     Dosage: THIRD MAINTENANCE DOSE.
     Route: 040
     Dates: start: 20190617, end: 20221118
  5. OCREVUS [Suspect]
     Active Substance: OCRELIZUMAB
     Dosage: 4TH MAINTENANCE DOSE
     Route: 040
     Dates: start: 20220422
  6. COMIRNATY (TOZINAMERAN) [Suspect]
     Active Substance: TOZINAMERAN
     Indication: Product used for unknown indication
     Route: 065
     Dates: start: 20210820

REACTIONS (1)
  - COVID-19 [Recovered/Resolved]

NARRATIVE: CASE EVENT DATE: 20211102
